FAERS Safety Report 14693387 (Version 4)
Quarter: 2018Q3

REPORT INFORMATION
  Report Type: Spontaneous
  Country: DE (occurrence: DE)
  Receive Date: 20180329
  Receipt Date: 20180713
  Transmission Date: 20181010
  Serious: Yes (Hospitalization, Other)
  Sender: FDA-Public Use
  Company Number: DE-DRREDDYS-GER/GER/18/0097224

PATIENT
  Age: 60 Year
  Sex: Male
  Weight: 95 kg

DRUGS (28)
  1. PALONOSETRON. [Suspect]
     Active Substance: PALONOSETRON HYDROCHLORIDE
     Dates: start: 20171030
  2. 5?FLUOROURACIL [Suspect]
     Active Substance: FLUOROURACIL
     Dosage: 4800 UNK, UNK
     Route: 040
     Dates: start: 20171016, end: 20171018
  3. MCP [Concomitant]
     Active Substance: METOCLOPRAMIDE HYDROCHLORIDE
     Indication: PRODUCT USED FOR UNKNOWN INDICATION
  4. FOLINIC ACID [Suspect]
     Active Substance: LEUCOVORIN
     Indication: COLORECTAL CANCER
     Route: 042
     Dates: start: 20160704, end: 20170410
  5. FOLINIC ACID [Suspect]
     Active Substance: LEUCOVORIN
     Dosage: UNK MG, UNK
     Route: 042
     Dates: start: 20171016, end: 20171016
  6. DEXAMETHASON [Concomitant]
     Active Substance: DEXAMETHASONE
     Indication: PROPHYLAXIS OF NAUSEA AND VOMITING
     Route: 042
     Dates: start: 20170116
  7. 5?FLUOROURACIL [Suspect]
     Active Substance: FLUOROURACIL
     Indication: COLORECTAL CANCER METASTATIC
     Dosage: BOLUS
     Route: 042
  8. 5?FLUOROURACIL [Suspect]
     Active Substance: FLUOROURACIL
     Dosage: 4800?6400 MG
     Route: 042
     Dates: start: 20160704, end: 20170706
  9. RIVAROXABAN [Suspect]
     Active Substance: RIVAROXABAN
     Indication: DEEP VEIN THROMBOSIS
     Dosage: 20 MG, 1X/DAY:QD
     Route: 048
     Dates: start: 20170524
  10. PEGYLATED LIPOSOMAL IRINOTECAN [Suspect]
     Active Substance: IRINOTECAN HYDROCHLORIDE
     Indication: COLORECTAL CANCER METASTATIC
     Dosage: 360 MG, 2X A WEEK
     Route: 042
     Dates: start: 20160704, end: 20161205
  11. NOVALGIN (METAMIZOLE SODIUM) [Concomitant]
     Active Substance: METAMIZOLE SODIUM
     Indication: ANALGESIC THERAPY
     Route: 048
     Dates: start: 20160620
  12. DEXAMETASON [Concomitant]
     Active Substance: DEXAMETHASONE
     Indication: PROPHYLAXIS OF NAUSEA AND VOMITING
     Route: 042
     Dates: start: 20160604, end: 20161216
  13. AVASTIN [Suspect]
     Active Substance: BEVACIZUMAB
     Dates: start: 20171002, end: 20171002
  14. RAMIPRIL. [Concomitant]
     Active Substance: RAMIPRIL
     Indication: HYPERTENSION
     Route: 048
     Dates: start: 20170410
  15. 5?FLUOROURACIL [Suspect]
     Active Substance: FLUOROURACIL
     Dosage: BOLUS
     Route: 042
     Dates: start: 20171016, end: 20171016
  16. PALONOSETRON. [Suspect]
     Active Substance: PALONOSETRON HYDROCHLORIDE
     Indication: PROPHYLAXIS OF NAUSEA AND VOMITING
     Dates: start: 20160704, end: 20161206
  17. 5?FLUOROURACIL [Suspect]
     Active Substance: FLUOROURACIL
     Route: 041
     Dates: start: 20170410, end: 20170412
  18. DEXAMETHASON [Concomitant]
     Active Substance: DEXAMETHASONE
     Route: 042
     Dates: start: 20160604, end: 20161206
  19. NOVALGIN (CAFFEINE\PARACETAMOL\PROPYPHENAZONE) [Concomitant]
     Active Substance: ACETAMINOPHEN\CAFFEINE\PROPYPHENAZONE
     Indication: ANALGESIC THERAPY
     Route: 048
     Dates: start: 20160620
  20. METOCLOPRAMIDE. [Concomitant]
     Active Substance: METOCLOPRAMIDE
     Indication: PRODUCT USED FOR UNKNOWN INDICATION
     Route: 048
     Dates: start: 20171016
  21. 5?FLUOROURACIL [Suspect]
     Active Substance: FLUOROURACIL
     Dosage: BOLUS
     Route: 040
     Dates: start: 20160704, end: 20161205
  22. 5?FLUOROURACIL [Suspect]
     Active Substance: FLUOROURACIL
     Dosage: 4800 UNK, UNK
     Route: 042
     Dates: start: 20171016, end: 20171016
  23. AVASTIN [Suspect]
     Active Substance: BEVACIZUMAB
     Indication: COLORECTAL CANCER METASTATIC
     Dosage: 475 MG, UNK
     Route: 042
     Dates: start: 20160704, end: 20160704
  24. PEGYLATED LIPOSOMAL IRINOTECAN [Suspect]
     Active Substance: IRINOTECAN HYDROCHLORIDE
     Indication: OFF LABEL USE
     Dosage: 360 MG, UNK
     Route: 042
     Dates: start: 20171016, end: 20171016
  25. 5?FLUOROURACIL [Suspect]
     Active Substance: FLUOROURACIL
     Indication: COLORECTAL CANCER
     Dosage: 4800?6400 MG
     Route: 041
     Dates: start: 20160704
  26. AVASTIN [Suspect]
     Active Substance: BEVACIZUMAB
     Dosage: 500 MG, UNK
     Route: 042
     Dates: start: 20171016, end: 20171016
  27. ONDANSETRON [Suspect]
     Active Substance: ONDANSETRON
     Indication: PROPHYLAXIS OF NAUSEA AND VOMITING
     Route: 042
     Dates: start: 20170116
  28. EMEND [Concomitant]
     Active Substance: APREPITANT
     Indication: PROPHYLAXIS OF NAUSEA AND VOMITING
     Dosage: 125/80MG
     Route: 048
     Dates: start: 20160704

REACTIONS (7)
  - Deep vein thrombosis [Recovered/Resolved with Sequelae]
  - Constipation [Recovered/Resolved]
  - Vomiting [Recovered/Resolved]
  - Paraesthesia [Recovered/Resolved]
  - Nausea [Recovered/Resolved with Sequelae]
  - Off label use [Unknown]
  - Haematochezia [Recovered/Resolved]

NARRATIVE: CASE EVENT DATE: 20170107
